FAERS Safety Report 4929500-2 (Version None)
Quarter: 2006Q1

REPORT INFORMATION
  Report Type: 
  Country: None (occurrence: None)
  Receive Date: 20060224
  Receipt Date: 20060216
  Transmission Date: 20060701
  Serious: No
  Sender: FDA-Public Use
  Company Number: ZONI002255

PATIENT
  Age: 3 Year
  Sex: Female

DRUGS (1)
  1. ZONISAMIDE [Suspect]
     Indication: EPILEPSY
     Dosage: 30 MG, 1 IN 1 D, ORAL
     Route: 048
     Dates: start: 20051209, end: 20051220

REACTIONS (4)
  - AGRANULOCYTOSIS [None]
  - DRUG EFFECT DECREASED [None]
  - STOMATITIS [None]
  - VIRAL INFECTION [None]
